FAERS Safety Report 8992317 (Version 2)
Quarter: 2013Q1

REPORT INFORMATION
  Report Type: Report from Study
  Country: US (occurrence: US)
  Receive Date: 20121231
  Receipt Date: 20130108
  Transmission Date: 20140127
  Serious: Yes (Hospitalization, Other)
  Sender: FDA-Public Use
  Company Number: US-ABBOTT-12P-163-0977403-00

PATIENT
  Age: 21 Year
  Sex: Male

DRUGS (8)
  1. HUMIRA [Suspect]
     Indication: COLITIS ULCERATIVE
     Dates: start: 20120822, end: 20120822
  2. HUMIRA [Suspect]
     Dates: start: 20120905
  3. HUMIRA [Suspect]
  4. HUMIRA [Suspect]
     Dates: start: 20121228
  5. ASACOL [Concomitant]
     Indication: COLITIS ULCERATIVE
     Route: 048
  6. AZATHIOPRINE [Concomitant]
     Indication: COLITIS ULCERATIVE
  7. CALCIUM WITH VITAMIN D [Concomitant]
     Indication: VITAMIN SUPPLEMENTATION
     Dosage: 600/400MG
  8. URSODIOL [Concomitant]
     Indication: CHOLANGITIS SCLEROSING
     Dosage: 2 TABS IN THE AM/ONE TABLET AT NIGHT

REACTIONS (9)
  - Pyrexia [Recovering/Resolving]
  - Colitis ulcerative [Recovering/Resolving]
  - Frequent bowel movements [Recovering/Resolving]
  - Drug effect increased [Not Recovered/Not Resolved]
  - Diarrhoea [Unknown]
  - Colitis ulcerative [Not Recovered/Not Resolved]
  - Frequent bowel movements [Not Recovered/Not Resolved]
  - Injection site pain [Recovered/Resolved]
  - Food intolerance [Unknown]
